FAERS Safety Report 8166626-7 (Version None)
Quarter: 2012Q1

REPORT INFORMATION
  Report Type: 
  Country: None (occurrence: None)
  Receive Date: 20120227
  Receipt Date: 20120220
  Transmission Date: 20120608
  Serious: Yes (Other)
  Sender: FDA-Public Use
  Company Number: CL-GENZYME-CERZ-1002393

PATIENT
  Sex: Female

DRUGS (1)
  1. CEREZYME [Suspect]
     Indication: GAUCHER'S DISEASE
     Dosage: UNK % SATURATION, UNK
     Dates: start: 20050101

REACTIONS (1)
  - ABORTION SPONTANEOUS [None]
